FAERS Safety Report 16126736 (Version 1)
Quarter: 2019Q1

REPORT INFORMATION
  Report Type: Spontaneous
  Country: US (occurrence: US)
  Receive Date: 20190222
  Receipt Date: 20190222
  Transmission Date: 20190418
  Serious: No
  Sender: FDA-Public Use
  Company Number: None

PATIENT
  Age: 77 Year
  Sex: Female
  Weight: 80.74 kg

DRUGS (11)
  1. DILTIAZEM HCL [Concomitant]
     Active Substance: DILTIAZEM HYDROCHLORIDE
  2. PRAVASTATIN. [Concomitant]
     Active Substance: PRAVASTATIN
  3. FISH OIL [Concomitant]
     Active Substance: FISH OIL
  4. ALLOPURINOL. [Concomitant]
     Active Substance: ALLOPURINOL
  5. IRBESTARTIN [Concomitant]
  6. ASPIRIN. [Concomitant]
     Active Substance: ASPIRIN
  7. OSTIO BI FLEX [Concomitant]
  8. BIOTIN [Concomitant]
     Active Substance: BIOTIN
  9. IRON [Concomitant]
     Active Substance: IRON
  10. VITAMIN D [Concomitant]
     Active Substance: CHOLECALCIFEROL
  11. IRBESARTAN TAB 300MG [Suspect]
     Active Substance: IRBESARTAN
     Indication: PRODUCT USED FOR UNKNOWN INDICATION
     Dosage: ?          QUANTITY:300 MG MILLIGRAM(S);?
     Route: 048
     Dates: end: 20190205

REACTIONS (3)
  - Recalled product [None]
  - Myalgia [None]
  - Dizziness [None]

NARRATIVE: CASE EVENT DATE: 201901
